FAERS Safety Report 22013762 (Version 4)
Quarter: 2023Q2

REPORT INFORMATION
  Report Type: Other
  Country: US (occurrence: US)
  Receive Date: 20230221
  Receipt Date: 20230419
  Transmission Date: 20230721
  Serious: No
  Sender: FDA-Public Use
  Company Number: US-GBT-020191

PATIENT
  Age: 4 Year
  Sex: Male

DRUGS (5)
  1. OXBRYTA [Suspect]
     Active Substance: VOXELOTOR
     Indication: Sickle cell disease
     Route: 048
     Dates: start: 2022
  2. OXBRYTA [Suspect]
     Active Substance: VOXELOTOR
     Indication: Sickle cell disease
     Dates: start: 202212
  3. HYDROXYUREA [Concomitant]
     Active Substance: HYDROXYUREA
  4. AMOXICILLIN [Concomitant]
     Active Substance: AMOXICILLIN
  5. FOLIC ACID [Concomitant]
     Active Substance: FOLIC ACID

REACTIONS (4)
  - Cough [Recovered/Resolved]
  - Vomiting [Recovered/Resolved]
  - Product use complaint [Unknown]
  - Therapy cessation [Unknown]

NARRATIVE: CASE EVENT DATE: 20230217
